FAERS Safety Report 13443012 (Version 1)
Quarter: 2017Q2

REPORT INFORMATION
  Report Type: Spontaneous
  Country: US (occurrence: US)
  Receive Date: 20170413
  Receipt Date: 20170413
  Transmission Date: 20170830
  Serious: Yes (Hospitalization)
  Sender: FDA-Public Use
  Company Number: None

PATIENT
  Age: 15 Year
  Sex: Male

DRUGS (11)
  1. VITAMIN D [Concomitant]
     Active Substance: CHOLECALCIFEROL
  2. SYLDENAFIL 20MG [Suspect]
     Active Substance: SILDENAFIL
     Indication: PULMONARY ARTERIAL HYPERTENSION
     Route: 048
     Dates: start: 20170316
  3. NIFEDIPINE. [Concomitant]
     Active Substance: NIFEDIPINE
  4. PREDNISONE. [Concomitant]
     Active Substance: PREDNISONE
  5. MUCINEX [Concomitant]
     Active Substance: GUAIFENESIN
  6. IRON [Concomitant]
     Active Substance: IRON
  7. LANTUS [Concomitant]
     Active Substance: INSULIN GLARGINE
  8. VITAMIN B12 [Concomitant]
     Active Substance: CYANOCOBALAMIN
  9. TYVASO [Concomitant]
     Active Substance: TREPROSTINIL
  10. COUMADIN [Concomitant]
     Active Substance: WARFARIN SODIUM
  11. PRAVACHOL [Concomitant]
     Active Substance: PRAVASTATIN SODIUM

REACTIONS (1)
  - Pneumonia [None]

NARRATIVE: CASE EVENT DATE: 20170406
